FAERS Safety Report 14304920 (Version 1)
Quarter: 2017Q4

REPORT INFORMATION
  Report Type: Spontaneous
  Country: JP (occurrence: JP)
  Receive Date: 20171219
  Receipt Date: 20171219
  Transmission Date: 20180321
  Serious: Yes (Life-Threatening, Hospitalization, Disabling, Other)
  Sender: FDA-Public Use
  Company Number: JP-OTSUKA-03100-JPN-07-0028

PATIENT
  Age: 43 Year
  Sex: Male
  Weight: 88 kg

DRUGS (7)
  1. AMOXAN [Concomitant]
     Active Substance: AMOXAPINE
     Dosage: 50 MG, TID
     Route: 048
     Dates: start: 20001202, end: 20060923
  2. ABILIFY [Suspect]
     Active Substance: ARIPIPRAZOLE
     Dosage: 3 MG, TID
     Route: 048
     Dates: start: 20060826, end: 20060923
  3. BICAMOL [Concomitant]
     Active Substance: BIPERIDEN HYDROCHLORIDE
     Dosage: 4 MG, TID
     Route: 048
     Dates: start: 20001202, end: 20060923
  4. SILECE [Concomitant]
     Active Substance: FLUNITRAZEPAM
     Dosage: 4 MG, QD
     Route: 048
     Dates: start: 20020427, end: 20060923
  5. FLUNITRAZEPAM [Concomitant]
     Active Substance: FLUNITRAZEPAM
     Indication: INSOMNIA
     Dosage: 4 MG, UNK
     Route: 048
     Dates: start: 20020427, end: 20060923
  6. BROTIZOLAM [Concomitant]
     Active Substance: BROTIZOLAM
     Dosage: 0.25 MG, QD
     Route: 048
     Dates: start: 20040207, end: 20060923
  7. ABILIFY [Suspect]
     Active Substance: ARIPIPRAZOLE
     Dosage: 3 MG, QID
     Route: 048
     Dates: start: 20060729, end: 20060825

REACTIONS (2)
  - Altered state of consciousness [Recovered/Resolved with Sequelae]
  - Suicide attempt [Recovered/Resolved with Sequelae]

NARRATIVE: CASE EVENT DATE: 20060924
